FAERS Safety Report 22064440 (Version 6)
Quarter: 2024Q4

REPORT INFORMATION
  Report Type: Report from Study
  Country: CN (occurrence: CN)
  Receive Date: 20230306
  Receipt Date: 20241220
  Transmission Date: 20250114
  Serious: No
  Sender: TAKEDA
  Company Number: CN-TAKEDA-2022TUS016853

PATIENT
  Age: 67 Year
  Sex: Female
  Weight: 63 kg

DRUGS (26)
  1. IXAZOMIB [Suspect]
     Active Substance: IXAZOMIB
     Indication: Plasma cell myeloma
     Dosage: 4 MILLIGRAM, 1/WEEK
     Dates: start: 20220117, end: 20220307
  2. IXAZOMIB [Suspect]
     Active Substance: IXAZOMIB
     Dosage: 3 MILLIGRAM, 1/WEEK
     Dates: start: 20220704
  3. CYCLOPHOSPHAMIDE [Suspect]
     Active Substance: CYCLOPHOSPHAMIDE
     Indication: Plasma cell myeloma
     Dosage: 50 MILLIGRAM, QD
     Dates: start: 20220117
  4. PREDNISONE [Suspect]
     Active Substance: PREDNISONE
     Indication: Plasma cell myeloma
     Dosage: 15 MILLIGRAM, QD
     Dates: start: 20220117
  5. CYCLOPHOSPHAMIDE [Concomitant]
     Active Substance: CYCLOPHOSPHAMIDE
     Indication: Plasma cell myeloma
     Dosage: 50 MILLIGRAM, QD
     Dates: start: 20220213, end: 20220216
  6. SODIUM BICARBONATE [Concomitant]
     Active Substance: SODIUM BICARBONATE
     Indication: Urine alkalinisation therapy
     Dosage: 0.5 GRAM, TID
     Dates: start: 20220105, end: 2022
  7. GLUTATHIONE [Concomitant]
     Active Substance: GLUTATHIONE
     Indication: Prophylaxis
     Dosage: 1.8 GRAM, QD
     Dates: start: 20220105, end: 20220120
  8. MONTELUKAST SODIUM [Concomitant]
     Active Substance: MONTELUKAST\MONTELUKAST SODIUM
     Indication: Asthma prophylaxis
     Dosage: 10 MILLIGRAM
  9. METHOXYPHENAMINE HYDROCHLORIDE [Concomitant]
     Active Substance: METHOXYPHENAMINE HYDROCHLORIDE
     Indication: Asthma prophylaxis
     Dosage: UNK UNK, TID
     Dates: start: 20220105, end: 202201
  10. ASPIRIN [Concomitant]
     Active Substance: ASPIRIN
     Indication: Antiplatelet therapy
     Dosage: 100 MILLIGRAM
  11. AMLODIPINE BESYLATE [Concomitant]
     Active Substance: AMLODIPINE BESYLATE
     Indication: Hypertension
     Dosage: 5 MILLIGRAM, QD
     Dates: start: 20220105, end: 202201
  12. AMLODIPINE BESYLATE [Concomitant]
     Active Substance: AMLODIPINE BESYLATE
     Dosage: 5 MILLIGRAM
     Dates: start: 20220213, end: 20220213
  13. CLOPIDOGREL BISULFATE [Concomitant]
     Active Substance: CLOPIDOGREL BISULFATE
     Indication: Antiplatelet therapy
     Dosage: 75 MILLIGRAM, QD
     Dates: start: 20220105, end: 20220213
  14. DEXAMETHASONE ACETATE [Concomitant]
     Active Substance: DEXAMETHASONE ACETATE
     Indication: Plasma cell myeloma
     Dosage: 2.25 MILLIGRAM, QD
     Dates: start: 20220120, end: 20220130
  15. DEXAMETHASONE ACETATE [Concomitant]
     Active Substance: DEXAMETHASONE ACETATE
     Dosage: 2.25 MILLIGRAM
     Dates: start: 20220213, end: 20220213
  16. ACYCLOVIR [Concomitant]
     Active Substance: ACYCLOVIR
     Indication: Pneumonia viral
     Dosage: 200 MILLIGRAM, QD
     Dates: start: 20220105, end: 202201
  17. ACYCLOVIR [Concomitant]
     Active Substance: ACYCLOVIR
     Indication: Antiviral treatment
     Dosage: 200 MILLIGRAM
     Dates: start: 20220213, end: 20220213
  18. ACYCLOVIR [Concomitant]
     Active Substance: ACYCLOVIR
     Dosage: 200 MILLIGRAM, QD
     Dates: start: 20220214, end: 20220214
  19. AMMONIUM GLYCYRRHIZATE\CYSTEINE [Concomitant]
     Active Substance: AMMONIUM GLYCYRRHIZATE\CYSTEINE
     Indication: Prophylaxis
     Dosage: 250 MILLILITER, QD
     Dates: start: 20220105, end: 20220120
  20. ESOMEPRAZOLE SODIUM [Concomitant]
     Active Substance: ESOMEPRAZOLE SODIUM
     Indication: Gastrointestinal disorder
     Dosage: 40 MILLIGRAM, QD
     Dates: start: 20220114, end: 20220120
  21. POTASSIUM CHLORIDE [Concomitant]
     Active Substance: POTASSIUM CHLORIDE
     Indication: Mineral supplementation
     Dosage: 5 GRAM
     Dates: start: 20220119, end: 20220119
  22. PAMIDRONATE DISODIUM [Concomitant]
     Active Substance: PAMIDRONATE DISODIUM
     Indication: Prophylaxis
     Dosage: 60 MILLIGRAM
     Dates: start: 20220120, end: 20220120
  23. PREDNISONE ACETATE [Concomitant]
     Active Substance: PREDNISONE ACETATE
     Indication: Plasma cell myeloma
     Dosage: 15 MILLIGRAM, QD
     Dates: start: 20220120, end: 20220211
  24. OMEPRAZOLE [Concomitant]
     Active Substance: OMEPRAZOLE
     Indication: Prophylaxis
     Dosage: 20 MILLIGRAM, QD
     Dates: start: 20220120, end: 20220213
  25. CLOPIDOGREL BISULFATE [Concomitant]
     Active Substance: CLOPIDOGREL BISULFATE
     Indication: Anticoagulation drug level
     Dosage: 75 MILLIGRAM
     Dates: start: 20220214, end: 20220214
  26. ATORVASTATIN CALCIUM [Concomitant]
     Active Substance: ATORVASTATIN CALCIUM
     Indication: Lipids decreased
     Dosage: 20 MILLIGRAM
     Dates: start: 20220214, end: 20220214

REACTIONS (3)
  - Off label use [Unknown]
  - Vomiting [Recovered/Resolved]
  - Diarrhoea [Recovered/Resolved]

NARRATIVE: CASE EVENT DATE: 20220120
